FAERS Safety Report 20089581 (Version 1)
Quarter: 2021Q4

REPORT INFORMATION
  Report Type: Spontaneous
  Country: CN (occurrence: None)
  Receive Date: 20211119
  Receipt Date: 20211119
  Transmission Date: 20220303
  Serious: Yes (Other)
  Sender: FDA-Public Use
  Company Number: CN-ROCHE-2958361

PATIENT
  Age: 66 Year
  Sex: Female
  Weight: 64 kg

DRUGS (19)
  1. MABTHERA [Suspect]
     Active Substance: RITUXIMAB
     Indication: Diffuse large B-cell lymphoma
     Dosage: R-CDOP
     Route: 065
     Dates: start: 201905, end: 201909
  2. CYCLOPHOSPHAMIDE [Concomitant]
     Active Substance: CYCLOPHOSPHAMIDE
     Indication: Diffuse large B-cell lymphoma
     Dosage: R-CDOP
     Dates: start: 201905, end: 201909
  3. VINCRISTINE [Concomitant]
     Active Substance: VINCRISTINE
     Indication: Diffuse large B-cell lymphoma
     Dosage: R-CDOP
     Dates: start: 201905, end: 201909
  4. PREDNISONE [Concomitant]
     Active Substance: PREDNISONE
     Indication: Diffuse large B-cell lymphoma
     Dosage: R-CDOP
     Dates: start: 201905, end: 201909
  5. SINTILIMAB [Concomitant]
     Active Substance: SINTILIMAB
     Indication: Diffuse large B-cell lymphoma
     Dates: start: 202106
  6. SINTILIMAB [Concomitant]
     Active Substance: SINTILIMAB
     Dates: start: 202108
  7. SINTILIMAB [Concomitant]
     Active Substance: SINTILIMAB
     Dates: start: 202109
  8. SINTILIMAB [Concomitant]
     Active Substance: SINTILIMAB
     Dates: start: 202110
  9. CARBOPLATIN [Concomitant]
     Active Substance: CARBOPLATIN
     Indication: Diffuse large B-cell lymphoma
  10. ETOPOSIDE [Concomitant]
     Active Substance: ETOPOSIDE
     Indication: Diffuse large B-cell lymphoma
  11. LENALIDOMIDE [Concomitant]
     Active Substance: LENALIDOMIDE
     Indication: Diffuse large B-cell lymphoma
  12. GEMCITABINE [Concomitant]
     Active Substance: GEMCITABINE
     Indication: Diffuse large B-cell lymphoma
     Dosage: GVD
     Dates: start: 202106
  13. GEMCITABINE [Concomitant]
     Active Substance: GEMCITABINE
     Dates: start: 202108
  14. VINORELBINE [Concomitant]
     Active Substance: VINORELBINE TARTRATE
     Indication: Diffuse large B-cell lymphoma
     Dosage: GVD
     Dates: start: 202106
  15. BRENTUXIMAB VEDOTIN [Concomitant]
     Active Substance: BRENTUXIMAB VEDOTIN
     Indication: Diffuse large B-cell lymphoma
     Dates: start: 202108
  16. BRENTUXIMAB VEDOTIN [Concomitant]
     Active Substance: BRENTUXIMAB VEDOTIN
     Dates: start: 202109
  17. BRENTUXIMAB VEDOTIN [Concomitant]
     Active Substance: BRENTUXIMAB VEDOTIN
     Dates: start: 202110
  18. AZACITIDINE [Concomitant]
     Active Substance: AZACITIDINE
     Indication: Diffuse large B-cell lymphoma
     Dates: start: 202109
  19. AZACITIDINE [Concomitant]
     Active Substance: AZACITIDINE
     Dates: start: 202110

REACTIONS (4)
  - Myelosuppression [Recovered/Resolved]
  - Liver injury [Unknown]
  - Infection [Unknown]
  - Herpes virus infection [Unknown]

NARRATIVE: CASE EVENT DATE: 20200101
